FAERS Safety Report 8484853-6 (Version None)
Quarter: 2012Q3

REPORT INFORMATION
  Report Type: 
  Country: None (occurrence: None)
  Receive Date: 20120703
  Receipt Date: 20120620
  Transmission Date: 20120928
  Serious: Yes (Other)
  Sender: FDA-Public Use
  Company Number: BR-TEVA-345217ISR

PATIENT
  Sex: Female
  Weight: 78 kg

DRUGS (3)
  1. CARBAMAZEPINE [Concomitant]
  2. COPAXONE [Suspect]
     Indication: MULTIPLE SCLEROSIS
     Dosage: 20 MILLIGRAM;
     Route: 058
     Dates: start: 20080801
  3. GABAPENTIN [Concomitant]

REACTIONS (1)
  - DIABETES MELLITUS [None]
